FAERS Safety Report 13923015 (Version 1)
Quarter: 2017Q3

REPORT INFORMATION
  Report Type: Spontaneous
  Country: IL (occurrence: IL)
  Receive Date: 20170830
  Receipt Date: 20170830
  Transmission Date: 20171127
  Serious: Yes (Other)
  Sender: FDA-Public Use
  Company Number: IL-BAXTER-2017BAX030721

PATIENT
  Age: 25 Year
  Sex: Female

DRUGS (6)
  1. LIKACIN [Suspect]
     Active Substance: AMIKACIN SULFATE
     Indication: CONDITION AGGRAVATED
  2. NACL 0.9% USP [Suspect]
     Active Substance: SODIUM CHLORIDE
     Indication: MEDICATION DILUTION
     Dosage: USED IN PREPARATION OF LIKACIN
     Route: 065
     Dates: start: 20170808
  3. MEROPENEM. [Suspect]
     Active Substance: MEROPENEM
     Indication: CYSTIC FIBROSIS
     Dosage: PREPARED WITH NACL, POWDER
     Route: 065
     Dates: start: 20170808, end: 20170819
  4. MEROPENEM. [Suspect]
     Active Substance: MEROPENEM
     Indication: CONDITION AGGRAVATED
  5. LIKACIN [Suspect]
     Active Substance: AMIKACIN SULFATE
     Indication: CYSTIC FIBROSIS
     Dosage: STRENGTH: 500MG/2ML, PREPARED WITH SODIUM CHLORIDE
     Route: 065
     Dates: start: 20170808
  6. NACL 0.9% USP [Suspect]
     Active Substance: SODIUM CHLORIDE
     Dosage: PREPARATION OF MEROPENEM
     Route: 065
     Dates: start: 20170808, end: 20170819

REACTIONS (6)
  - Erythema [Recovered/Resolved]
  - Product colour issue [Unknown]
  - Poor quality drug administered [Unknown]
  - Heart rate increased [Recovered/Resolved]
  - Pruritus [Recovered/Resolved]
  - Product storage error [None]

NARRATIVE: CASE EVENT DATE: 20170818
